FAERS Safety Report 8780231 (Version 1)
Quarter: 2012Q4

REPORT INFORMATION
  Report Type: Spontaneous
  Country: US (occurrence: None)
  Receive Date: 20120904
  Receipt Date: 20120904
  Transmission Date: 20130627
  Serious: Yes (Hospitalization)
  Sender: FDA-Public Use
  Company Number: None

PATIENT
  Age: 81 Year
  Sex: Male
  Weight: 72.8 kg

DRUGS (1)
  1. ALLOPURINOL [Suspect]
     Dosage: 2 tab
     Route: 048
     Dates: start: 20120313, end: 20120517

REACTIONS (10)
  - Hypotension [None]
  - Haemoptysis [None]
  - Nausea [None]
  - Vomiting [None]
  - Renal failure acute [None]
  - Hyperkalaemia [None]
  - Rash macular [None]
  - Hepatic enzyme increased [None]
  - Dysgeusia [None]
  - Hypophagia [None]
